FAERS Safety Report 15034522 (Version 4)
Quarter: 2018Q3

REPORT INFORMATION
  Report Type: Report from Study
  Country: US (occurrence: US)
  Receive Date: 20180620
  Receipt Date: 20180716
  Transmission Date: 20181010
  Serious: No
  Sender: FDA-Public Use
  Company Number: US-AMGEN-USASP2018080914

PATIENT
  Age: 14 Year
  Sex: Female
  Weight: 54.4 kg

DRUGS (1)
  1. ENBREL [Suspect]
     Active Substance: ETANERCEPT
     Indication: JUVENILE IDIOPATHIC ARTHRITIS
     Dosage: 25 MG, QWK
     Route: 058
     Dates: start: 20180601

REACTIONS (6)
  - Flushing [Recovered/Resolved]
  - Injection site warmth [Unknown]
  - Injection site erythema [Unknown]
  - Rash [Recovered/Resolved]
  - Injection site pruritus [Unknown]
  - Injection site swelling [Unknown]

NARRATIVE: CASE EVENT DATE: 2018
